FAERS Safety Report 11429026 (Version 1)
Quarter: 2015Q3

REPORT INFORMATION
  Report Type: Spontaneous
  Country: US (occurrence: US)
  Receive Date: 20150828
  Receipt Date: 20150828
  Transmission Date: 20151125
  Serious: No
  Sender: FDA-Public Use
  Company Number: US-ROCHE-1063488

PATIENT
  Sex: Male

DRUGS (2)
  1. COPEGUS [Suspect]
     Active Substance: RIBAVIRIN
     Indication: PRODUCT USED FOR UNKNOWN INDICATION
     Route: 048
     Dates: start: 20111028, end: 20120406
  2. PEGASYS [Suspect]
     Active Substance: PEGINTERFERON ALFA-2A
     Indication: CHRONIC HEPATITIS C
     Route: 058
     Dates: start: 20111028, end: 20120406

REACTIONS (8)
  - Fatigue [Unknown]
  - Irritability [Unknown]
  - Platelet count decreased [Unknown]
  - Malaise [Unknown]
  - Blood thyroid stimulating hormone abnormal [Unknown]
  - Disturbance in attention [Unknown]
  - Weight decreased [Unknown]
  - Insomnia [Unknown]
